FAERS Safety Report 10377191 (Version 1)
Quarter: 2014Q3

REPORT INFORMATION
  Report Type: Spontaneous
  Country: US (occurrence: US)
  Receive Date: 20140812
  Receipt Date: 20140812
  Transmission Date: 20150326
  Serious: No
  Sender: FDA-Public Use
  Company Number: US-BIOGENIDEC-2014BI078611

PATIENT
  Sex: Male

DRUGS (2)
  1. TYSABRI [Suspect]
     Active Substance: NATALIZUMAB
     Indication: MULTIPLE SCLEROSIS
     Route: 042
     Dates: start: 20080830, end: 2013
  2. TYSABRI [Suspect]
     Active Substance: NATALIZUMAB
     Indication: MULTIPLE SCLEROSIS
     Route: 042

REACTIONS (4)
  - Visual acuity reduced [Recovered/Resolved]
  - Vision blurred [Recovered/Resolved]
  - Optic neuritis [Recovered/Resolved]
  - Blindness [Recovered/Resolved]

NARRATIVE: CASE EVENT DATE: 2013
